FAERS Safety Report 25950490 (Version 1)
Quarter: 2025Q4

REPORT INFORMATION
  Report Type: Report from Study
  Country: US (occurrence: US)
  Receive Date: 20251023
  Receipt Date: 20251023
  Transmission Date: 20260117
  Serious: Yes (Death, Other)
  Sender: ABBVIE
  Company Number: US-ABBVIE-6513819

PATIENT
  Age: 69 Year
  Sex: Female

DRUGS (1)
  1. SYNTHROID [Suspect]
     Active Substance: LEVOTHYROXINE SODIUM
     Indication: Product used for unknown indication
     Dosage: 150MCG/ TOOK ONE TABLET IN THE MORNING
     Route: 048

REACTIONS (4)
  - Renal failure [Fatal]
  - Sepsis [Fatal]
  - Cardiac failure [Fatal]
  - Respiratory failure [Fatal]
